FAERS Safety Report 23653633 (Version 1)
Quarter: 2024Q1

REPORT INFORMATION
  Report Type: Spontaneous
  Country: US (occurrence: US)
  Receive Date: 20240320
  Receipt Date: 20240320
  Transmission Date: 20240410
  Serious: Yes (Other)
  Sender: FDA-Public Use
  Company Number: US-BRISTOL-MYERS SQUIBB COMPANY-2024-043241

PATIENT
  Age: 74 Year
  Sex: Male
  Weight: 120.2 kg

DRUGS (1)
  1. ORENCIA [Suspect]
     Active Substance: ABATACEPT
     Indication: Rheumatoid arthritis
     Dosage: FREQUENCY WAS EVERY 4
     Route: 042

REACTIONS (2)
  - Rheumatoid arthritis-associated interstitial lung disease [Unknown]
  - Intentional dose omission [Unknown]
